FAERS Safety Report 23208327 (Version 1)
Quarter: 2023Q4

REPORT INFORMATION
  Report Type: Spontaneous
  Country: CN (occurrence: CN)
  Receive Date: 20231121
  Receipt Date: 20231121
  Transmission Date: 20240110
  Serious: Yes (Life-Threatening)
  Sender: FDA-Public Use
  Company Number: CN-AstraZeneca-2023-58086

PATIENT

DRUGS (2)
  1. GOSERELIN [Suspect]
     Active Substance: GOSERELIN
     Indication: Dysmenorrhoea
     Dosage: 3.6 MILLIGRAM, QD
     Route: 058
     Dates: start: 20231010, end: 20231010
  2. ZOLADEX [Suspect]
     Active Substance: GOSERELIN ACETATE
     Indication: Dysmenorrhoea
     Dosage: UNK
     Route: 065

REACTIONS (1)
  - Hepatic function abnormal [Recovering/Resolving]

NARRATIVE: CASE EVENT DATE: 20231010
